FAERS Safety Report 18275730 (Version 4)
Quarter: 2020Q4

REPORT INFORMATION
  Report Type: Report from Study
  Country: DE (occurrence: DE)
  Receive Date: 20200916
  Receipt Date: 20201201
  Transmission Date: 20210113
  Serious: Yes (Hospitalization)
  Sender: FDA-Public Use
  Company Number: DE-EXELIXIS-XL18420032765

PATIENT
  Age: 46 Year
  Sex: Male
  Weight: 120 kg

DRUGS (11)
  1. TRAMADOL. [Concomitant]
     Active Substance: TRAMADOL
     Indication: OSTEOARTHRITIS
     Dosage: 100 MG, TID
     Dates: start: 201107
  2. XL184 [Suspect]
     Active Substance: CABOZANTINIB
     Indication: RENAL CELL CARCINOMA
     Dosage: 40 MG, QD
     Route: 048
     Dates: start: 20200721
  3. NIVOLUMAB [Suspect]
     Active Substance: NIVOLUMAB
     Indication: RENAL CELL CARCINOMA
     Dosage: 3 MG/KG, Q3WEEKS, 4 DOSES
     Route: 042
     Dates: start: 20200721, end: 20200909
  4. IPILIMUMAB [Suspect]
     Active Substance: IPILIMUMAB
     Indication: RENAL CELL CARCINOMA
     Dosage: 1 MG/KG, Q3WEEKS, 4 DOSES
     Route: 042
     Dates: start: 20200721, end: 20200909
  5. BISOPROLOL [Concomitant]
     Active Substance: BISOPROLOL
  6. NIVOLUMAB [Suspect]
     Active Substance: NIVOLUMAB
     Dosage: 3 MG/KG, Q3WEEKS, 4 DOSES
     Route: 042
     Dates: start: 20201013
  7. IBUPROFEN. [Concomitant]
     Active Substance: IBUPROFEN
  8. NOVALGIN [Concomitant]
  9. IPILIMUMAB [Suspect]
     Active Substance: IPILIMUMAB
     Dosage: 1 MG/KG, Q3WEEKS, 4 DOSES
     Route: 042
     Dates: start: 20201013
  10. OMEPRAZOL [Concomitant]
     Active Substance: OMEPRAZOLE
  11. TERPIN [Concomitant]
     Active Substance: TERPIN
     Indication: OSTEOARTHRITIS
     Dosage: 20/10 MG, BID
     Dates: start: 201007

REACTIONS (3)
  - Constipation [Recovering/Resolving]
  - General physical health deterioration [Recovered/Resolved]
  - Anal abscess [Recovered/Resolved]

NARRATIVE: CASE EVENT DATE: 20200904
